FAERS Safety Report 5378143-8 (Version None)
Quarter: 2007Q3

REPORT INFORMATION
  Report Type: 
  Country: None (occurrence: None)
  Receive Date: 20070702
  Receipt Date: 20070702
  Transmission Date: 20080115
  Serious: Yes (Life-Threatening)
  Sender: FDA-Public Use
  Company Number: None

PATIENT
  Age: 12 Year
  Sex: Male
  Weight: 52.1637 kg

DRUGS (2)
  1. ICYHOT ??? CHATTEM, INC. [Suspect]
     Indication: PAIN IN EXTREMITY
     Dosage: ^APPLY GENEROUSLY^ AS NEEDED
     Dates: start: 20061215, end: 20061216
  2. EQUIVALENT STORE BRANDS [Suspect]
     Indication: ACCIDENTAL EXPOSURE
     Dates: start: 20070630, end: 20070701

REACTIONS (4)
  - DOCUMENTED HYPERSENSITIVITY TO ADMINISTERED DRUG [None]
  - MEDICATION ERROR [None]
  - PHARMACEUTICAL PRODUCT COMPLAINT [None]
  - SWELLING [None]
